FAERS Safety Report 21689210 (Version 3)
Quarter: 2023Q2

REPORT INFORMATION
  Report Type: Report from Study
  Country: US (occurrence: US)
  Receive Date: 20221206
  Receipt Date: 20230609
  Transmission Date: 20230722
  Serious: Yes (Hospitalization)
  Sender: FDA-Public Use
  Company Number: US-ARGENX-2022-ARGX-US001869

PATIENT
  Sex: Male
  Weight: 119 kg

DRUGS (1)
  1. VYVGART [Suspect]
     Active Substance: EFGARTIGIMOD ALFA-FCAB
     Indication: Myasthenia gravis
     Dosage: UNK
     Route: 042
     Dates: start: 20220822

REACTIONS (9)
  - Atrial fibrillation [Unknown]
  - Pneumonia [Unknown]
  - Bronchitis [Unknown]
  - Chest pain [Unknown]
  - Dyspnoea [Unknown]
  - Stress [Unknown]
  - Weight decreased [Unknown]
  - Decreased appetite [Unknown]
  - Influenza [Recovered/Resolved]
